FAERS Safety Report 9885430 (Version 2)
Quarter: 2017Q1

REPORT INFORMATION
  Report Type: Spontaneous
  Country: US (occurrence: US)
  Receive Date: 20140210
  Receipt Date: 20170119
  Transmission Date: 20170429
  Serious: Yes (Hospitalization)
  Sender: FDA-Public Use
  Company Number: US-MALLINCKRODT-T201401144

PATIENT
  Age: 13 Year
  Sex: Male

DRUGS (9)
  1. GABLOFEN [Suspect]
     Active Substance: BACLOFEN
     Indication: MUSCLE SPASTICITY
     Dosage: 725 ?G, QD
     Route: 037
  2. PEPCID [Concomitant]
     Active Substance: FAMOTIDINE
  3. LANSOPRAZOLE. [Concomitant]
     Active Substance: LANSOPRAZOLE
  4. GABLOFEN [Suspect]
     Active Substance: BACLOFEN
     Dosage: 96 ?G, QD
     Route: 037
  5. LIORESAL [Concomitant]
     Active Substance: BACLOFEN
     Route: 037
  6. KEPPRA [Concomitant]
     Active Substance: LEVETIRACETAM
  7. PHENOBARBITAL. [Concomitant]
     Active Substance: PHENOBARBITAL
  8. BACLOFEN. [Concomitant]
     Active Substance: BACLOFEN
     Route: 048
  9. DOCUSATE [Concomitant]
     Active Substance: DOCUSATE

REACTIONS (7)
  - Withdrawal syndrome [Unknown]
  - Overdose [Recovered/Resolved]
  - Respiratory depression [Recovered/Resolved]
  - Lethargy [Recovered/Resolved]
  - Implant site swelling [Recovering/Resolving]
  - Heart rate decreased [Recovered/Resolved]
  - Unresponsive to stimuli [Recovered/Resolved]

NARRATIVE: CASE EVENT DATE: 20140124
